FAERS Safety Report 17579257 (Version 2)
Quarter: 2020Q2

REPORT INFORMATION
  Report Type: Report from Study
  Country: CA (occurrence: CA)
  Receive Date: 20200325
  Receipt Date: 20200513
  Transmission Date: 20200713
  Serious: Yes (Other)
  Sender: FDA-Public Use
  Company Number: CA-ROCHE-2570631

PATIENT
  Age: 44 Year
  Sex: Male

DRUGS (7)
  1. METHOTREXATE. [Concomitant]
     Active Substance: METHOTREXATE
     Dosage: 20 MG, QW
     Route: 048
  2. ATARAX [Concomitant]
     Active Substance: HYDROXYZINE HYDROCHLORIDE
     Indication: PRODUCT USED FOR UNKNOWN INDICATION
     Dosage: 25 MG, TID (AS NEEDED)
     Route: 065
  3. XOLAIR [Suspect]
     Active Substance: OMALIZUMAB
     Indication: CHRONIC SPONTANEOUS URTICARIA
     Dosage: 300 MG, EVERY 4 WEEKS
     Route: 058
     Dates: start: 20150122
  4. XOLAIR [Suspect]
     Active Substance: OMALIZUMAB
     Indication: ECZEMA
     Dosage: 300 MG, Q4W
     Route: 058
     Dates: start: 20200213
  5. XOLAIR [Suspect]
     Active Substance: OMALIZUMAB
     Dosage: 300 MG, Q4W
     Route: 058
     Dates: start: 20200507
  6. CORTISONE [Concomitant]
     Active Substance: CORTISONE
     Indication: DERMATITIS
     Route: 065
  7. METHOTREXATE. [Concomitant]
     Active Substance: METHOTREXATE
     Indication: DERMATITIS
     Dosage: 10 MG, QW
     Route: 048
     Dates: start: 20141217

REACTIONS (21)
  - Nasopharyngitis [Unknown]
  - Nipple disorder [Not Recovered/Not Resolved]
  - Fatigue [Not Recovered/Not Resolved]
  - Formication [Recovering/Resolving]
  - Pruritus [Unknown]
  - Pustule [Unknown]
  - Hyperaesthesia [Recovering/Resolving]
  - Anaphylactoid reaction [Unknown]
  - Hypoaesthesia [Unknown]
  - Gynaecomastia [Not Recovered/Not Resolved]
  - Wound infection [Unknown]
  - Fluid retention [Not Recovered/Not Resolved]
  - Pyrexia [Unknown]
  - Urticaria [Unknown]
  - Anaphylactic reaction [Unknown]
  - Inflammation [Unknown]
  - Skin hypertrophy [Unknown]
  - Somnolence [Unknown]
  - Type I hypersensitivity [Unknown]
  - Skin infection [Unknown]
  - Medication error [Unknown]

NARRATIVE: CASE EVENT DATE: 20150513
